FAERS Safety Report 5651927-4 (Version None)
Quarter: 2008Q1

REPORT INFORMATION
  Report Type: 
  Country: None (occurrence: None)
  Receive Date: 20080305
  Receipt Date: 20080226
  Transmission Date: 20080703
  Serious: Yes (Hospitalization, Other)
  Sender: FDA-Public Use
  Company Number: US-PFIZER INC-2007065646

PATIENT
  Sex: Female
  Weight: 51.7 kg

DRUGS (6)
  1. XALATAN [Suspect]
     Indication: GLAUCOMA
     Dates: start: 20070529, end: 20070802
  2. ALL OTHER THERAPEUTIC PRODUCTS [Suspect]
  3. LAMICTAL [Suspect]
     Indication: CONVULSION
     Dates: start: 20060401, end: 20070101
  4. PROTONIX [Suspect]
     Indication: ABDOMINAL PAIN UPPER
     Dates: start: 20070810, end: 20070818
  5. PHENOBARBITAL TAB [Concomitant]
  6. TEGRETOL [Concomitant]

REACTIONS (6)
  - ABDOMINAL PAIN UPPER [None]
  - HAEMATEMESIS [None]
  - HEADACHE [None]
  - INFLUENZA [None]
  - OVERDOSE [None]
  - RASH [None]
